FAERS Safety Report 20838602 (Version 1)
Quarter: 2022Q2

REPORT INFORMATION
  Report Type: Spontaneous
  Country: US (occurrence: US)
  Receive Date: 20220517
  Receipt Date: 20220517
  Transmission Date: 20220720
  Serious: Yes (Disabling)
  Sender: FDA-Public Use
  Company Number: US-TEVA-2022-US-2037418

PATIENT
  Age: 26 Year
  Sex: Female
  Weight: 63.5 kg

DRUGS (66)
  1. DOCETAXEL [Suspect]
     Active Substance: DOCETAXEL
     Indication: Invasive ductal breast carcinoma
     Route: 042
     Dates: start: 20150107
  2. DOCETAXEL [Suspect]
     Active Substance: DOCETAXEL
     Indication: Invasive ductal breast carcinoma
     Route: 042
     Dates: start: 20141217
  3. DOCETAXEL [Suspect]
     Active Substance: DOCETAXEL
     Dates: start: 20150218
  4. DOCETAXEL [Suspect]
     Active Substance: DOCETAXEL
     Dates: start: 20150401
  5. DOCETAXEL [Suspect]
     Active Substance: DOCETAXEL
     Route: 042
     Dates: start: 20150128
  6. DOCETAXEL [Suspect]
     Active Substance: DOCETAXEL
     Route: 042
     Dates: start: 20150311
  7. CARBOPLATIN [Suspect]
     Active Substance: CARBOPLATIN
     Indication: Invasive ductal breast carcinoma
     Dosage: CYCLE 1
     Route: 042
     Dates: start: 20141217
  8. CARBOPLATIN [Suspect]
     Active Substance: CARBOPLATIN
     Dosage: CYCLE 2
     Route: 042
     Dates: start: 20150107
  9. CARBOPLATIN [Suspect]
     Active Substance: CARBOPLATIN
     Dosage: CYCLE 3
     Route: 042
     Dates: start: 20150128
  10. CARBOPLATIN [Suspect]
     Active Substance: CARBOPLATIN
     Dosage: CYCLE 4
     Route: 042
     Dates: start: 20150218
  11. CARBOPLATIN [Suspect]
     Active Substance: CARBOPLATIN
     Dosage: CYCLE 5
     Route: 042
     Dates: start: 20150311
  12. CARBOPLATIN [Suspect]
     Active Substance: CARBOPLATIN
     Dosage: CYCLE 6
     Route: 042
     Dates: start: 20150401
  13. CARBOPLATIN [Suspect]
     Active Substance: CARBOPLATIN
     Dosage: CYCLE 7
     Route: 042
     Dates: start: 20150422
  14. HERCEPTIN [Suspect]
     Active Substance: TRASTUZUMAB
     Indication: Invasive ductal breast carcinoma
     Dosage: CYCLE 1
     Route: 042
     Dates: start: 20141217
  15. HERCEPTIN [Suspect]
     Active Substance: TRASTUZUMAB
     Dosage: CYCLE 2
     Route: 042
     Dates: start: 20150107
  16. HERCEPTIN [Suspect]
     Active Substance: TRASTUZUMAB
     Dosage: CYCLE 3
     Route: 042
     Dates: start: 20150128
  17. HERCEPTIN [Suspect]
     Active Substance: TRASTUZUMAB
     Dosage: CYCLE 4
     Route: 042
     Dates: start: 20150218
  18. HERCEPTIN [Suspect]
     Active Substance: TRASTUZUMAB
     Dosage: CYCLE 5
     Route: 042
     Dates: start: 20150311
  19. HERCEPTIN [Suspect]
     Active Substance: TRASTUZUMAB
     Dosage: CYCLE 6
     Route: 042
     Dates: start: 20150401
  20. HERCEPTIN [Suspect]
     Active Substance: TRASTUZUMAB
     Dosage: CYCLE 7
     Route: 042
     Dates: start: 20150422
  21. PERJETA [Suspect]
     Active Substance: PERTUZUMAB
     Indication: Invasive ductal breast carcinoma
     Dosage: CYCLE 1
     Route: 042
     Dates: start: 20141217
  22. PERJETA [Suspect]
     Active Substance: PERTUZUMAB
     Dosage: CYCLE 2
     Route: 042
     Dates: start: 20150107
  23. PERJETA [Suspect]
     Active Substance: PERTUZUMAB
     Dosage: CYCLE 3
     Route: 042
     Dates: start: 20150128
  24. PERJETA [Suspect]
     Active Substance: PERTUZUMAB
     Dosage: CYCLE 4
     Route: 042
     Dates: start: 20150218
  25. PERJETA [Suspect]
     Active Substance: PERTUZUMAB
     Dosage: CYCLE 5
     Route: 042
     Dates: start: 20150311
  26. PERJETA [Suspect]
     Active Substance: PERTUZUMAB
     Dosage: CYCLE 6
     Route: 042
     Dates: start: 20150401
  27. PERJETA [Suspect]
     Active Substance: PERTUZUMAB
     Dosage: CYCLE 7
     Route: 042
     Dates: start: 20150422
  28. TAXOTERE [Suspect]
     Active Substance: DOCETAXEL
     Indication: Invasive ductal breast carcinoma
     Dosage: NO. OF CYCLES: 06, EVERY 3 WEEKS
     Route: 065
     Dates: start: 20141217
  29. TYLENOL [Concomitant]
     Active Substance: ACETAMINOPHEN
     Indication: Pain
     Route: 065
     Dates: start: 2007
  30. TYLENOL [Concomitant]
     Active Substance: ACETAMINOPHEN
     Route: 048
     Dates: start: 20141217
  31. TYLENOL [Concomitant]
     Active Substance: ACETAMINOPHEN
     Route: 048
     Dates: start: 20150107
  32. TYLENOL [Concomitant]
     Active Substance: ACETAMINOPHEN
     Dosage: AS NEEDED
     Route: 048
  33. DOXYCYCLINE [Concomitant]
     Active Substance: DOXYCYCLINE
     Indication: Infertility female
     Route: 048
  34. LETROZOLE [Concomitant]
     Active Substance: LETROZOLE
     Indication: Infertility female
  35. MENOPUR [Concomitant]
     Active Substance: FOLLITROPIN\LUTEINIZING HORMONE
     Indication: Infertility female
     Route: 065
  36. GONAL-F [Concomitant]
     Active Substance: FOLLITROPIN
     Indication: Infertility female
     Route: 065
  37. ALBUTEROL [Concomitant]
     Active Substance: ALBUTEROL
     Indication: Wheezing
     Dosage: 2 TO 4 PUFFS INHALED EVERY 4-6 HOURS
  38. NUVARING [Concomitant]
     Active Substance: ETHINYL ESTRADIOL\ETONOGESTREL
     Dosage: 0.120MG-0.015MG VAGINAL RING
     Route: 067
  39. DECADRON [Concomitant]
     Active Substance: DEXAMETHASONE
     Route: 042
     Dates: start: 20141217
  40. DECADRON [Concomitant]
     Active Substance: DEXAMETHASONE
     Route: 042
     Dates: start: 20150107
  41. ALOXI [Concomitant]
     Active Substance: PALONOSETRON HYDROCHLORIDE
     Route: 042
     Dates: start: 20141217
  42. ALOXI [Concomitant]
     Active Substance: PALONOSETRON HYDROCHLORIDE
     Route: 042
     Dates: start: 20150107
  43. PEPCID [Concomitant]
     Active Substance: FAMOTIDINE
     Route: 042
     Dates: start: 20141217
  44. PEPCID [Concomitant]
     Active Substance: FAMOTIDINE
     Route: 042
     Dates: start: 20150107
  45. BENADRYL [Concomitant]
     Active Substance: DIPHENHYDRAMINE HYDROCHLORIDE
     Indication: Pain
     Dosage: ONCE
     Route: 042
     Dates: start: 20141217
  46. BENADRYL [Concomitant]
     Active Substance: DIPHENHYDRAMINE HYDROCHLORIDE
     Dosage: ONCE
     Route: 042
     Dates: start: 20150107
  47. BENADRYL [Concomitant]
     Active Substance: DIPHENHYDRAMINE HYDROCHLORIDE
     Dosage: AS NEEDED
     Route: 048
  48. EMEND [Concomitant]
     Active Substance: APREPITANT
     Route: 042
     Dates: start: 20141217
  49. EMEND [Concomitant]
     Active Substance: APREPITANT
     Route: 042
     Dates: start: 20150107
  50. NEULASTA [Concomitant]
     Active Substance: PEGFILGRASTIM
     Route: 058
     Dates: start: 20141218
  51. NEULASTA [Concomitant]
     Active Substance: PEGFILGRASTIM
     Route: 058
     Dates: start: 20150108
  52. PHENERGAN [Concomitant]
     Active Substance: PROMETHAZINE HYDROCHLORIDE
     Route: 042
     Dates: start: 20141217
  53. FAMOTIDINE [Concomitant]
     Active Substance: FAMOTIDINE
     Dosage: ONCE
     Route: 042
     Dates: start: 20141217
  54. FAMOTIDINE [Concomitant]
     Active Substance: FAMOTIDINE
     Dosage: ONCE
     Route: 042
     Dates: start: 20150101
  55. PALONOSETRON [Concomitant]
     Active Substance: PALONOSETRON
     Dosage: ONCE
     Route: 042
     Dates: start: 20141217
  56. PALONOSETRON [Concomitant]
     Active Substance: PALONOSETRON
     Dosage: ONCE
     Route: 042
     Dates: start: 20150101
  57. DEXAMETHASONE [Concomitant]
     Active Substance: DEXAMETHASONE
     Dosage: ONCE
     Route: 042
     Dates: start: 20141217
  58. DEXAMETHASONE [Concomitant]
     Active Substance: DEXAMETHASONE
     Dosage: ONCE
     Route: 042
     Dates: start: 20150107
  59. DEXAMETHASONE [Concomitant]
     Active Substance: DEXAMETHASONE
     Dosage: 1 WITH BREAKFAST, 1 WITH SUPPER, THE DAY BEFORE AND TWO DAYS, WITH FOOD AFTER EACH DOSE OF CHEMO
     Route: 048
  60. PROAIR HFA [Concomitant]
     Active Substance: ALBUTEROL SULFATE
     Indication: Wheezing
     Dosage: 2 PUFFS INHALED
     Route: 065
  61. PROAIR HFA [Concomitant]
     Active Substance: ALBUTEROL SULFATE
     Indication: Dyspnoea
  62. NORCO [Concomitant]
     Active Substance: ACETAMINOPHEN\HYDROCODONE BITARTRATE
     Indication: Pain
     Dosage: 5MG/325MG AS NEEDED
     Route: 048
  63. ADVIL [Concomitant]
     Active Substance: IBUPROFEN
     Indication: Pain
     Dosage: 2 TABLETS, AS NEEDED
     Route: 048
  64. EMLA [Concomitant]
     Active Substance: LIDOCAINE\PRILOCAINE
     Dosage: 2.5%/2.5%
     Route: 061
  65. ANCEF [Concomitant]
     Active Substance: CEFAZOLIN SODIUM
     Route: 042
  66. LEUPROLIDE [Concomitant]
     Active Substance: LEUPROLIDE
     Route: 065
     Dates: start: 20141205

REACTIONS (12)
  - Alopecia totalis [Not Recovered/Not Resolved]
  - Madarosis [Not Recovered/Not Resolved]
  - Alopecia areata [Not Recovered/Not Resolved]
  - Hair texture abnormal [Not Recovered/Not Resolved]
  - Hair colour changes [Not Recovered/Not Resolved]
  - Vomiting [Unknown]
  - Constipation [Unknown]
  - Decreased appetite [Unknown]
  - Diarrhoea [Unknown]
  - Motion sickness [Unknown]
  - Proctalgia [Unknown]
  - Paraesthesia [Unknown]

NARRATIVE: CASE EVENT DATE: 20141201
